FAERS Safety Report 9259674 (Version 3)
Quarter: 2013Q2

REPORT INFORMATION
  Report Type: Spontaneous
  Country: US (occurrence: US)
  Receive Date: 20130429
  Receipt Date: 20130607
  Transmission Date: 20140414
  Serious: Yes (Other)
  Sender: FDA-Public Use
  Company Number: US-ROCHE-802960

PATIENT
  Age: 28 Year
  Sex: Male
  Weight: 77.18 kg

DRUGS (1)
  1. ACCUTANE [Suspect]
     Indication: ACNE
     Route: 065

REACTIONS (3)
  - Colitis ulcerative [Unknown]
  - Large intestine polyp [Unknown]
  - Anxiety disorder [Unknown]
